FAERS Safety Report 16682220 (Version 1)
Quarter: 2019Q3

REPORT INFORMATION
  Report Type: Spontaneous
  Country: HR (occurrence: HR)
  Receive Date: 20190808
  Receipt Date: 20190808
  Transmission Date: 20191004
  Serious: Yes (Other)
  Sender: FDA-Public Use
  Company Number: HR-SA-2019SA209063

PATIENT
  Sex: Female

DRUGS (3)
  1. AMARYL [Suspect]
     Active Substance: GLIMEPIRIDE
     Dosage: DRANK AN UNKNOWN AMOUNT
     Route: 048
     Dates: start: 20190423, end: 20190423
  2. GALVUS [Suspect]
     Active Substance: VILDAGLIPTIN
     Dosage: DRANK AN UNKNOWN AMOUNT
     Route: 048
     Dates: start: 20190423, end: 20190423
  3. GLUCOPHAGE [Suspect]
     Active Substance: METFORMIN HYDROCHLORIDE
     Dosage: DRANK AN UNKNOWN AMOUNT
     Route: 048
     Dates: start: 20190423, end: 20190423

REACTIONS (2)
  - Suicide attempt [Unknown]
  - Hypoglycaemia [Unknown]

NARRATIVE: CASE EVENT DATE: 20190423
